FAERS Safety Report 13901589 (Version 1)
Quarter: 2017Q3

REPORT INFORMATION
  Report Type: Spontaneous
  Country: BR (occurrence: BR)
  Receive Date: 20170824
  Receipt Date: 20170824
  Transmission Date: 20171127
  Serious: Yes (Other)
  Sender: FDA-Public Use
  Company Number: BR-ROCHE-1977992

PATIENT
  Age: 71 Year
  Sex: Female

DRUGS (7)
  1. RIVOTRIL [Suspect]
     Active Substance: CLONAZEPAM
     Route: 048
  2. RIVOTRIL [Suspect]
     Active Substance: CLONAZEPAM
     Indication: HEART RATE DECREASED
     Route: 048
  3. ATENOLOL. [Concomitant]
     Active Substance: ATENOLOL
     Indication: BLOOD DISORDER
  4. PLASIL [Suspect]
     Active Substance: METOCLOPRAMIDE HYDROCHLORIDE
     Indication: PRODUCT USED FOR UNKNOWN INDICATION
     Route: 065
  5. RIVOTRIL [Suspect]
     Active Substance: CLONAZEPAM
     Indication: ANXIETY
  6. RIVOTRIL [Suspect]
     Active Substance: CLONAZEPAM
     Indication: ANXIETY
     Route: 048
  7. RIVOTRIL [Suspect]
     Active Substance: CLONAZEPAM
     Indication: HEART RATE DECREASED
     Route: 048

REACTIONS (12)
  - Oropharyngeal spasm [Unknown]
  - Wrong technique in product usage process [Unknown]
  - Heart rate irregular [Unknown]
  - Cardiac arrest [Unknown]
  - Throat tightness [Recovering/Resolving]
  - Somnolence [Not Recovered/Not Resolved]
  - Infarction [Unknown]
  - Throat irritation [Unknown]
  - Malaise [Unknown]
  - Dysphagia [Unknown]
  - Nervousness [Unknown]
  - Cough [Unknown]

NARRATIVE: CASE EVENT DATE: 20170811
